FAERS Safety Report 5678152-5 (Version None)
Quarter: 2008Q1

REPORT INFORMATION
  Report Type: 
  Country: None (occurrence: None)
  Receive Date: 20080319
  Receipt Date: 20080312
  Transmission Date: 20080703
  Serious: Yes (Other)
  Sender: FDA-Public Use
  Company Number: FABR-1000086

PATIENT
  Age: 15 Year
  Sex: Male

DRUGS (1)
  1. FABRAZYME [Suspect]
     Indication: FABRY'S DISEASE
     Dosage: 35 MG, Q2W, INTRAVENOUS
     Route: 042

REACTIONS (4)
  - ANAPHYLACTIC REACTION [None]
  - CHOKING [None]
  - EPISTAXIS [None]
  - SYNCOPE [None]
